FAERS Safety Report 8576008-1 (Version None)
Quarter: 2012Q3

REPORT INFORMATION
  Report Type: 
  Country: None (occurrence: None)
  Receive Date: 20120725
  Receipt Date: 20120716
  Transmission Date: 20120928
  Serious: Yes (Hospitalization, Other)
  Sender: FDA-Public Use
  Company Number: US-INDICUS PHARMA-000011

PATIENT
  Age: 65 Year
  Sex: Male

DRUGS (2)
  1. DONEPEZIL HCL [Suspect]
     Indication: SCHIZOAFFECTIVE DISORDER BIPOLAR TYPE
     Dosage: 10.00-MG-1.0DAYS
  2. FLUOXETINE [Suspect]
     Indication: SCHIZOAFFECTIVE DISORDER BIPOLAR TYPE
     Dosage: 20.00-MG-1.0DAYS

REACTIONS (4)
  - CHOLINERGIC SYNDROME [None]
  - FAECAL INCONTINENCE [None]
  - DRUG INTERACTION [None]
  - ABNORMAL BEHAVIOUR [None]
